FAERS Safety Report 8032216-X (Version None)
Quarter: 2012Q1

REPORT INFORMATION
  Report Type: 
  Country: None (occurrence: None)
  Receive Date: 20120110
  Receipt Date: 20111230
  Transmission Date: 20120608
  Serious: No
  Sender: FDA-Public Use
  Company Number: US-BIOGENIDEC-2012BI000135

PATIENT
  Age: 41 Year
  Sex: Female

DRUGS (1)
  1. AVONEX [Suspect]
     Indication: MULTIPLE SCLEROSIS
     Route: 030
     Dates: start: 20050101

REACTIONS (11)
  - PARAESTHESIA [None]
  - DRUG INEFFECTIVE [None]
  - APHASIA [None]
  - HYPOAESTHESIA [None]
  - SENSORY DISTURBANCE [None]
  - MEMORY IMPAIRMENT [None]
  - COORDINATION ABNORMAL [None]
  - RASH PRURITIC [None]
  - COGNITIVE DISORDER [None]
  - MUSCULOSKELETAL DISORDER [None]
  - MULTIPLE SCLEROSIS [None]
